FAERS Safety Report 23110821 (Version 1)
Quarter: 2023Q4

REPORT INFORMATION
  Report Type: Report from Study
  Country: FR (occurrence: FR)
  Receive Date: 20231026
  Receipt Date: 20231026
  Transmission Date: 20240110
  Serious: Yes (Hospitalization, Other)
  Sender: FDA-Public Use
  Company Number: FR-JAZZ-2019-FR-007847

PATIENT

DRUGS (12)
  1. DEFITELIO [Suspect]
     Active Substance: DEFIBROTIDE SODIUM
     Indication: Prophylaxis
     Dosage: 25 MG/KG/DAY
     Route: 042
     Dates: start: 20190404, end: 20190502
  2. THIOTEPA [Concomitant]
     Active Substance: THIOTEPA
     Indication: Product used for unknown indication
  3. BUSULFAN [Concomitant]
     Active Substance: BUSULFAN
     Indication: Product used for unknown indication
  4. ETOPOSIDE [Concomitant]
     Active Substance: ETOPOSIDE
     Indication: Product used for unknown indication
  5. CYCLOPHOSPHAMIDE [Concomitant]
     Active Substance: CYCLOPHOSPHAMIDE
     Indication: Product used for unknown indication
  6. FLUDARABINE [Concomitant]
     Active Substance: FLUDARABINE PHOSPHATE
     Indication: Product used for unknown indication
  7. MYCOPHENOLATE MOFETIL [Concomitant]
     Active Substance: MYCOPHENOLATE MOFETIL
     Indication: Product used for unknown indication
  8. URSODIOL [Concomitant]
     Active Substance: URSODIOL
     Indication: Product used for unknown indication
  9. INOTUZUMAB OZOGAMICIN [Concomitant]
     Active Substance: INOTUZUMAB OZOGAMICIN
     Indication: Product used for unknown indication
  10. BACTRIM [Concomitant]
     Active Substance: SULFAMETHOXAZOLE\TRIMETHOPRIM
     Indication: Infection
     Dosage: 3X/WEEK
     Route: 048
     Dates: start: 20190326, end: 20190408
  11. RAMIPRIL [Concomitant]
     Active Substance: RAMIPRIL
     Indication: Hypertension
     Dosage: UNK
     Dates: start: 20190418, end: 20190502
  12. NPLATE [Concomitant]
     Active Substance: ROMIPLOSTIM
     Indication: Thrombocytopenia
     Dosage: 350 MICROGRAM/WEEK
     Route: 042
     Dates: start: 20190508

REACTIONS (6)
  - Haemorrhoidal haemorrhage [Recovered/Resolved]
  - Haemorrhoids [Unknown]
  - Klebsiella bacteraemia [Unknown]
  - Stenotrophomonas infection [Unknown]
  - Toxic encephalopathy [Recovered/Resolved]
  - Off label use [Unknown]

NARRATIVE: CASE EVENT DATE: 20190404
